FAERS Safety Report 15097315 (Version 1)
Quarter: 2018Q3

REPORT INFORMATION
  Report Type: Spontaneous
  Country: US (occurrence: US)
  Receive Date: 20180702
  Receipt Date: 20180702
  Transmission Date: 20181010
  Serious: No
  Sender: FDA-Public Use
  Company Number: US-PFIZER INC-2018006370

PATIENT
  Sex: Female

DRUGS (1)
  1. DOCETAXEL. [Suspect]
     Active Substance: DOCETAXEL
     Indication: CHEMOTHERAPY
     Dosage: UNK, EVERY 3 WEEKS (6 CYCLES)
     Dates: start: 20120531, end: 201209

REACTIONS (4)
  - Hair disorder [Unknown]
  - Alopecia [Unknown]
  - Hair colour changes [Unknown]
  - Hair texture abnormal [Unknown]
